FAERS Safety Report 20145905 (Version 1)
Quarter: 2021Q4

REPORT INFORMATION
  Report Type: Spontaneous
  Country: US (occurrence: None)
  Receive Date: 20211203
  Receipt Date: 20211203
  Transmission Date: 20220303
  Serious: No
  Sender: FDA-Public Use
  Company Number: None

PATIENT
  Age: 67 Year
  Sex: Male

DRUGS (1)
  1. BUPRENORPHINE\NALOXONE [Suspect]
     Active Substance: BUPRENORPHINE\NALOXONE
     Indication: Pain
     Dosage: OTHER FREQUENCY : PM;?
     Route: 048
     Dates: start: 20210812, end: 20210907

REACTIONS (6)
  - Dyspnoea [None]
  - Nausea [None]
  - Dizziness [None]
  - Dizziness [None]
  - Vomiting [None]
  - Respiratory depression [None]

NARRATIVE: CASE EVENT DATE: 20210907
